FAERS Safety Report 14516272 (Version 3)
Quarter: 2018Q2

REPORT INFORMATION
  Report Type: Spontaneous
  Country: DE (occurrence: DE)
  Receive Date: 20180211
  Receipt Date: 20180404
  Transmission Date: 20180711
  Serious: Yes (Life-Threatening, Hospitalization)
  Sender: FDA-Public Use
  Company Number: PHHY2018DE022081

PATIENT
  Age: 73 Year
  Sex: Female

DRUGS (1)
  1. MOXIFLOXACIN. [Suspect]
     Active Substance: MOXIFLOXACIN
     Indication: ANTIBIOTIC THERAPY
     Dosage: UNK
     Route: 065

REACTIONS (3)
  - Ventricular tachycardia [Recovering/Resolving]
  - Long QT syndrome [Recovering/Resolving]
  - Electrocardiogram QT prolonged [Unknown]
